FAERS Safety Report 5052736-X (Version None)
Quarter: 2006Q3

REPORT INFORMATION
  Report Type: 
  Country: None (occurrence: None)
  Receive Date: 20060713
  Receipt Date: 20060713
  Transmission Date: 20061208
  Serious: Yes (Hospitalization)
  Sender: FDA-Public Use
  Company Number: None

PATIENT
  Sex: Female
  Weight: 77 kg

DRUGS (4)
  1. FLUOROURACIL [Suspect]
     Dosage: 10200 MG
     Dates: start: 20060601
  2. BEVACIZUMAB (RHUMAB VEGF) [Suspect]
     Dosage: 780 MG
     Dates: start: 20060530
  3. LEUCOVORIN CALCIUM [Suspect]
     Dosage: 1560 MG
     Dates: start: 20060530
  4. ELOXATIN [Suspect]
     Dosage: 310 MG
     Dates: start: 20060530

REACTIONS (6)
  - ABDOMINAL PAIN [None]
  - DIARRHOEA [None]
  - DRUG INEFFECTIVE [None]
  - DRUG TOXICITY [None]
  - NAUSEA [None]
  - VOMITING [None]
